FAERS Safety Report 26169438 (Version 1)
Quarter: 2025Q4

REPORT INFORMATION
  Report Type: Spontaneous
  Country: EU (occurrence: EU)
  Receive Date: 20251217
  Receipt Date: 20251217
  Transmission Date: 20260117
  Serious: Yes (Hospitalization)
  Sender: PFIZER
  Company Number: EU-SANDOZ-SDZ2025DE092420

PATIENT
  Sex: Male

DRUGS (5)
  1. METHOTREXATE SODIUM [Suspect]
     Active Substance: METHOTREXATE SODIUM
     Dosage: 10 MG
     Route: 058
     Dates: start: 20091014
  2. IBUPROFEN [Suspect]
     Active Substance: IBUPROFEN
     Dosage: 600 MG
     Route: 065
     Dates: start: 20240111
  3. CELECOXIB [Suspect]
     Active Substance: CELECOXIB
     Dosage: 100 MG
     Route: 065
     Dates: start: 20220825, end: 20240111
  4. COSENTYX [Suspect]
     Active Substance: SECUKINUMAB
     Dosage: 150 MG
     Route: 065
     Dates: start: 20220921, end: 20250121
  5. COSENTYX [Suspect]
     Active Substance: SECUKINUMAB
     Dosage: 150 MG
     Route: 065
     Dates: start: 20250304

REACTIONS (1)
  - Osteoarthritis [Unknown]

NARRATIVE: CASE EVENT DATE: 20250129
